FAERS Safety Report 7702713-2 (Version None)
Quarter: 2011Q3

REPORT INFORMATION
  Report Type: 
  Country: None (occurrence: None)
  Receive Date: 20110817
  Receipt Date: 20110813
  Transmission Date: 20111222
  Serious: Yes (Hospitalization)
  Sender: FDA-Public Use
  Company Number: 20097794

PATIENT
  Age: 13 Year
  Sex: Male

DRUGS (1)
  1. LIORESAL [Suspect]
     Indication: MUSCLE SPASTICITY
     Dosage: 300-400 MCG, DAILY, INTRATHECAL
     Route: 037

REACTIONS (9)
  - NO THERAPEUTIC RESPONSE [None]
  - CLONUS [None]
  - DRUG WITHDRAWAL SYNDROME [None]
  - INSOMNIA [None]
  - DEVICE MALFUNCTION [None]
  - CONDITION AGGRAVATED [None]
  - TREMOR [None]
  - HYPERTONIA [None]
  - PAIN [None]
